FAERS Safety Report 6240412-7 (Version None)
Quarter: 2009Q2

REPORT INFORMATION
  Report Type: 
  Country: None (occurrence: None)
  Receive Date: 20090623
  Receipt Date: 20090615
  Transmission Date: 20091009
  Serious: Yes (Other)
  Sender: FDA-Public Use
  Company Number: US-JNJFOC-20090605290

PATIENT
  Sex: Male
  Weight: 74.84 kg

DRUGS (4)
  1. FENTANYL TRANSDERMAL SYSTEM [Suspect]
     Indication: BACK PAIN
     Route: 062
  2. KLONOPIN [Concomitant]
     Indication: ANXIETY
     Route: 048
  3. NORCO [Concomitant]
     Indication: BREAKTHROUGH PAIN
     Dosage: 10/350 AS NEEDED
     Route: 048
  4. XANAX [Concomitant]
     Indication: SLEEP DISORDER
     Dosage: AT NIGHT
     Route: 048

REACTIONS (7)
  - BLOOD CHOLESTEROL INCREASED [None]
  - DRUG DOSE OMISSION [None]
  - ERECTILE DYSFUNCTION [None]
  - INCORRECT DRUG ADMINISTRATION DURATION [None]
  - LIBIDO DECREASED [None]
  - PREGNANCY OF PARTNER [None]
  - TREATMENT NONCOMPLIANCE [None]
